FAERS Safety Report 15956934 (Version 1)
Quarter: 2019Q1

REPORT INFORMATION
  Report Type: Report from Study
  Country: DE (occurrence: DE)
  Receive Date: 20190213
  Receipt Date: 20190213
  Transmission Date: 20190417
  Serious: Yes (Hospitalization, Disabling, Other)
  Sender: FDA-Public Use
  Company Number: DE-ALLERGAN-1906113US

PATIENT
  Age: 75 Year
  Sex: Female

DRUGS (14)
  1. MUSARIL [Suspect]
     Active Substance: TETRAZEPAM
     Indication: PRODUCT USED FOR UNKNOWN INDICATION
     Dosage: 50 MG, QD
     Route: 048
     Dates: start: 20001206, end: 20001219
  2. VALIUM [Suspect]
     Active Substance: DIAZEPAM
     Dosage: UNK
     Route: 048
     Dates: start: 20001204, end: 20001205
  3. TRAMAL [Suspect]
     Active Substance: TRAMADOL
     Indication: PRODUCT USED FOR UNKNOWN INDICATION
     Dosage: 100 MG, QD
     Route: 048
     Dates: start: 20001205, end: 20001219
  4. HALDOL [Suspect]
     Active Substance: HALOPERIDOL
     Dosage: 4 MG, QD
     Route: 048
     Dates: start: 20001130, end: 20001206
  5. HALDOL [Suspect]
     Active Substance: HALOPERIDOL
     Indication: PRODUCT USED FOR UNKNOWN INDICATION
     Dosage: 4 MG, QD
     Route: 048
     Dates: start: 20001207, end: 20001207
  6. BIFITERAL [Concomitant]
     Active Substance: LACTULOSE
     Dosage: 15 ML, QD
     Route: 048
     Dates: start: 20001130
  7. L-THYROXIN [Concomitant]
     Active Substance: LEVOTHYROXINE SODIUM
     Dosage: 75 MG, QD
     Route: 048
     Dates: start: 20001130
  8. MONO EMBOLEX [Concomitant]
     Active Substance: CERTOPARIN SODIUM
     Dosage: 1 DF, QD
     Route: 058
     Dates: start: 20001205, end: 20001219
  9. XIMOVAN [Concomitant]
     Active Substance: ZOPICLONE
     Dosage: 7.5 MG FROM 02 DEC 2000.
     Route: 048
     Dates: start: 20001130
  10. VALIUM [Suspect]
     Active Substance: DIAZEPAM
     Indication: PRODUCT USED FOR UNKNOWN INDICATION
     Dosage: UNK
     Route: 048
     Dates: start: 20001206, end: 20001206
  11. CITALOPRAM HYDROBROMIDE UNK [Suspect]
     Active Substance: CITALOPRAM HYDROBROMIDE
     Indication: PRODUCT USED FOR UNKNOWN INDICATION
     Dosage: 20 MG, QD
     Route: 048
     Dates: start: 20001130
  12. VALIUM [Suspect]
     Active Substance: DIAZEPAM
     Dosage: 4 MG, QD
     Route: 048
     Dates: start: 20001130, end: 20001203
  13. PARACETAMOL [Concomitant]
     Active Substance: ACETAMINOPHEN
     Dosage: 1.5 G, QD
     Route: 048
     Dates: start: 20001205, end: 20001219
  14. VIGANTOLETTEN [Concomitant]
     Active Substance: CHOLECALCIFEROL
     Dosage: 1 DF, QD
     Route: 058
     Dates: start: 20001130

REACTIONS (14)
  - Hypoaesthesia [Recovered/Resolved]
  - Back pain [Recovered/Resolved with Sequelae]
  - Embolism [Recovered/Resolved]
  - Cystitis [Recovered/Resolved]
  - Fall [Recovered/Resolved with Sequelae]
  - Urinary tract infection [Recovered/Resolved]
  - Spinal fracture [Recovered/Resolved with Sequelae]
  - Ill-defined disorder [Recovered/Resolved]
  - Dizziness postural [Recovered/Resolved]
  - Blood pressure decreased [Recovered/Resolved]
  - Orthostatic hypotension [Recovered/Resolved]
  - Vomiting [Recovered/Resolved]
  - Somnolence [Recovered/Resolved]
  - Urinary retention [Recovered/Resolved]

NARRATIVE: CASE EVENT DATE: 20001205
